FAERS Safety Report 4292742-6 (Version None)
Quarter: 2004Q1

REPORT INFORMATION
  Report Type: 
  Country: None (occurrence: None)
  Receive Date: 20040126
  Receipt Date: 20030905
  Transmission Date: 20041129
  Serious: No
  Sender: FDA-Public Use
  Company Number: USA030946400

PATIENT
  Age: 72 Year
  Sex: Female
  Weight: 70 kg

DRUGS (7)
  1. FORTEO [Suspect]
     Indication: OSTEOPOROSIS
     Dates: start: 20030826
  2. HUMALOG [Concomitant]
  3. SYNTHROID [Concomitant]
  4. NEXIUM [Concomitant]
  5. LANTUS [Concomitant]
  6. WELLBUTRIN [Concomitant]
  7. APO-METOPROLOL (METOPROLOL TARTRATE) [Concomitant]

REACTIONS (3)
  - ARTHRALGIA [None]
  - HEADACHE [None]
  - PAIN IN EXTREMITY [None]
